FAERS Safety Report 6604651-5 (Version None)
Quarter: 2010Q1

REPORT INFORMATION
  Report Type: 
  Country: None (occurrence: None)
  Receive Date: 20100226
  Receipt Date: 20100216
  Transmission Date: 20100710
  Serious: Yes (Hospitalization)
  Sender: FDA-Public Use
  Company Number: US-ROCHE-681287

PATIENT
  Sex: Female
  Weight: 74.4 kg

DRUGS (12)
  1. TRASTUZUMAB [Suspect]
     Indication: BREAST CANCER
     Route: 065
     Dates: start: 20091218, end: 20100113
  2. IXABEPILONE [Suspect]
     Indication: BREAST CANCER
     Route: 065
     Dates: start: 20091218, end: 20100113
  3. CARBOPLATIN [Suspect]
     Indication: BREAST CANCER
     Route: 065
     Dates: start: 20091218, end: 20100113
  4. LORTAB [Concomitant]
     Route: 048
  5. ZOLOFT [Concomitant]
     Route: 048
  6. GLIPIZIDE [Concomitant]
     Route: 048
  7. ELAVIL [Concomitant]
     Route: 048
  8. RESTORIL [Concomitant]
     Route: 048
  9. PERCOCET [Concomitant]
     Dosage: DOSE: 10 - 325 MG
     Route: 048
  10. OXYCODONE HCL [Concomitant]
     Route: 048
  11. TESSALON [Concomitant]
     Route: 048
  12. XANAX [Concomitant]
     Route: 048

REACTIONS (4)
  - DIARRHOEA [None]
  - INFECTION [None]
  - SEPSIS [None]
  - VOMITING [None]
